FAERS Safety Report 7545418-3 (Version None)
Quarter: 2011Q2

REPORT INFORMATION
  Report Type: 
  Country: None (occurrence: None)
  Receive Date: 20110613
  Receipt Date: 20110613
  Transmission Date: 20111010
  Serious: Yes (Hospitalization)
  Sender: FDA-Public Use
  Company Number: None

PATIENT
  Sex: Male
  Weight: 98.83 kg

DRUGS (2)
  1. ETOPOSIDE [Suspect]
     Dosage: 663 MG
  2. CISPLATIN [Suspect]
     Dosage: 176 MG

REACTIONS (2)
  - BODY TEMPERATURE INCREASED [None]
  - CHILLS [None]
